FAERS Safety Report 20730749 (Version 1)
Quarter: 2022Q2

REPORT INFORMATION
  Report Type: Spontaneous
  Country: US (occurrence: US)
  Receive Date: 20220420
  Receipt Date: 20220420
  Transmission Date: 20220721
  Serious: Yes (Other)
  Sender: FDA-Public Use
  Company Number: US-ASTELLAS-2021US028722

PATIENT
  Age: 71 Year
  Sex: Female

DRUGS (4)
  1. LEXISCAN [Suspect]
     Active Substance: REGADENOSON
     Indication: Cardiac stress test
     Dosage: UNK UNK, UNKNOWN FREQ. (ADMINISTERED OVER 10 SECONDS)
     Route: 065
     Dates: start: 202107, end: 202107
  2. LEXISCAN [Suspect]
     Active Substance: REGADENOSON
     Indication: Cardiac stress test
     Dosage: UNK UNK, UNKNOWN FREQ. (ADMINISTERED OVER 10 SECONDS)
     Route: 065
     Dates: start: 202107, end: 202107
  3. LEXISCAN [Suspect]
     Active Substance: REGADENOSON
     Indication: Cardiac stress test
     Dosage: UNK UNK, UNKNOWN FREQ. (ADMINISTERED OVER 10 SECONDS)
     Route: 065
     Dates: start: 202107, end: 202107
  4. LEXISCAN [Suspect]
     Active Substance: REGADENOSON
     Indication: Cardiac stress test
     Dosage: UNK UNK, UNKNOWN FREQ. (ADMINISTERED OVER 10 SECONDS)
     Route: 065
     Dates: start: 202107, end: 202107

REACTIONS (2)
  - Generalised tonic-clonic seizure [Unknown]
  - Incorrect product administration duration [Recovered/Resolved]

NARRATIVE: CASE EVENT DATE: 20210628
